FAERS Safety Report 7035881-9 (Version None)
Quarter: 2010Q4

REPORT INFORMATION
  Report Type: 
  Country: None (occurrence: None)
  Receive Date: 20101008
  Receipt Date: 20101004
  Transmission Date: 20110411
  Serious: Yes (Hospitalization)
  Sender: FDA-Public Use
  Company Number: IT-AMGEN-QUU443465

PATIENT
  Sex: Female

DRUGS (1)
  1. ENBREL [Suspect]
     Indication: RHEUMATOID ARTHRITIS
     Dosage: 50 MG WEEKLY
     Route: 058
     Dates: start: 20090601, end: 20100105

REACTIONS (5)
  - ARTHRALGIA [None]
  - HYPERPYREXIA [None]
  - LEUKOCYTOSIS [None]
  - PUSTULAR PSORIASIS [None]
  - RASH PUSTULAR [None]
